FAERS Safety Report 10007269 (Version 2)
Quarter: 2014Q1

REPORT INFORMATION
  Report Type: Spontaneous
  Country: US (occurrence: US)
  Receive Date: 20140313
  Receipt Date: 20140326
  Transmission Date: 20141002
  Serious: Yes (Life-Threatening, Hospitalization, Other)
  Sender: FDA-Public Use
  Company Number: US-BAYER-2014-036410

PATIENT
  Age: 29 Year
  Sex: Female
  Weight: 68.03 kg

DRUGS (9)
  1. MIRENA [Suspect]
     Indication: CONTRACEPTION
     Dosage: 20 MCG/24HR, CONT
     Route: 015
     Dates: start: 20110524, end: 20120604
  2. CIPROFLOXACIN [Concomitant]
     Indication: SINUSITIS
     Dosage: 500 MG, UNK
     Dates: start: 20120205
  3. MAXALT [Concomitant]
     Indication: MIGRAINE
     Dosage: 5 MG,REPEAT DOSING IN 2 HOURS
  4. ZANTAC [Concomitant]
  5. ESTRADIOL [Concomitant]
  6. VICODIN [Concomitant]
  7. IBUPROFEN [Concomitant]
  8. MEDROXYPROGESTERONE [Concomitant]
     Dosage: UNK
     Dates: start: 20120412
  9. MOTRIN [Concomitant]
     Dosage: 800 MG, UNK

REACTIONS (8)
  - Uterine perforation [None]
  - Abdominal pain [None]
  - General physical health deterioration [None]
  - Anxiety [None]
  - Anhedonia [None]
  - Infection [None]
  - Emotional distress [None]
  - Uterine fibrosis [None]
